FAERS Safety Report 25201470 (Version 1)
Quarter: 2025Q2

REPORT INFORMATION
  Report Type: Spontaneous
  Country: US (occurrence: US)
  Receive Date: 20250416
  Receipt Date: 20250416
  Transmission Date: 20250716
  Serious: No
  Sender: HIKMA
  Company Number: US-HIKMA PHARMACEUTICALS USA INC.-US-H14001-24-07514

PATIENT
  Sex: Female

DRUGS (2)
  1. LEVORPHANOL [Suspect]
     Active Substance: LEVORPHANOL
     Indication: Pain
     Dosage: 2 MILLIGRAM, TID
     Route: 065
  2. METHADONE [Concomitant]
     Active Substance: METHADONE HYDROCHLORIDE
     Indication: Pain
     Route: 065

REACTIONS (3)
  - Musculoskeletal stiffness [Unknown]
  - Product availability issue [Unknown]
  - Product dose omission issue [Unknown]
